FAERS Safety Report 8894545 (Version 1)
Quarter: 2012Q4

REPORT INFORMATION
  Report Type: 
  Country: US (occurrence: US)
  Receive Date: 20121107
  Receipt Date: 20121107
  Transmission Date: 20130627
  Serious: No
  Sender: FDA-Public Use
  Company Number: US-AMGEN-USASP2011050469

PATIENT
  Age: 42 Year
  Sex: Female

DRUGS (7)
  1. ENBREL [Suspect]
     Indication: PRODUCT USED FOR UNKNOWN INDICATION
     Dosage: 50 mg, qwk
     Route: 058
  2. METHOTREXATE [Concomitant]
     Dosage: 2.5 mg, UNK
  3. MULTIVITAMIN                       /00097801/ [Concomitant]
     Dosage: UNK
  4. VITAMIN D /00107901/ [Concomitant]
     Dosage: 400 mg, UNK
  5. PROAIR HFA [Concomitant]
     Dosage: UNK
  6. DICYCLOMINE                        /00068601/ [Concomitant]
     Dosage: 100 mg, UNK
  7. PLAQUENIL                          /00072602/ [Concomitant]
     Dosage: 200 IU, UNK

REACTIONS (2)
  - Sinusitis [Recovered/Resolved]
  - Bronchitis [Recovered/Resolved]
